FAERS Safety Report 9595469 (Version 1)
Quarter: 2013Q4

REPORT INFORMATION
  Report Type: Spontaneous
  Country: CH (occurrence: CH)
  Receive Date: 20131004
  Receipt Date: 20131004
  Transmission Date: 20140711
  Serious: Yes (Hospitalization, Other)
  Sender: FDA-Public Use
  Company Number: CH-ROXANE LABORATORIES, INC.-2013-RO-01613RO

PATIENT
  Age: 67 Year
  Sex: Female

DRUGS (3)
  1. CALCIUM CARBONATE [Suspect]
     Indication: OSTEOPOROSIS
  2. MORPHINE [Suspect]
     Indication: PAIN
     Route: 037
  3. THIAZIDE DIURECTIC [Suspect]

REACTIONS (3)
  - Milk-alkali syndrome [Recovered/Resolved]
  - Accidental overdose [Unknown]
  - Hypoventilation [Unknown]
